FAERS Safety Report 18485449 (Version 1)
Quarter: 2020Q4

REPORT INFORMATION
  Report Type: Spontaneous
  Country: US (occurrence: US)
  Receive Date: 20201110
  Receipt Date: 20201110
  Transmission Date: 20210114
  Serious: No
  Sender: FDA-Public Use
  Company Number: US-BAYER-2020-237182

PATIENT
  Age: 79 Year
  Sex: Female

DRUGS (2)
  1. CLARITIN [Suspect]
     Active Substance: LORATADINE
     Indication: ALLERGY PROPHYLAXIS
     Dosage: 1 DF
     Route: 048
  2. ICY HOT (MENTHOL) [Suspect]
     Active Substance: MENTHOL
     Dosage: UNK

REACTIONS (4)
  - Product use in unapproved indication [Unknown]
  - Off label use [Unknown]
  - Product package associated injury [None]
  - Product closure removal difficult [None]
